FAERS Safety Report 7559359-9 (Version None)
Quarter: 2011Q2

REPORT INFORMATION
  Report Type: 
  Country: None (occurrence: None)
  Receive Date: 20110621
  Receipt Date: 20110616
  Transmission Date: 20111010
  Serious: Yes (Hospitalization, Other)
  Sender: FDA-Public Use
  Company Number: US-PFIZER INC-2010006379

PATIENT
  Sex: Female

DRUGS (2)
  1. CHANTIX [Suspect]
     Dosage: UNK
     Dates: start: 20080101
  2. ZIAC [Concomitant]
     Indication: BLOOD PRESSURE
     Dosage: UNK
     Dates: start: 20040101

REACTIONS (5)
  - SUICIDE ATTEMPT [None]
  - MENTAL DISORDER [None]
  - DEPRESSION [None]
  - ANXIETY [None]
  - PANIC ATTACK [None]
